FAERS Safety Report 4875563-2 (Version None)
Quarter: 2006Q1

REPORT INFORMATION
  Report Type: 
  Country: None (occurrence: None)
  Receive Date: 20060105
  Receipt Date: 20051222
  Transmission Date: 20060701
  Serious: Yes (Hospitalization)
  Sender: FDA-Public Use
  Company Number: 2005P1000640

PATIENT
  Age: 81 Year
  Sex: Male
  Weight: 70 kg

DRUGS (10)
  1. RETEPLASE (RETEPLASE) [Suspect]
     Indication: ACUTE MYOCARDIAL INFARCTION
     Dosage: IV
     Route: 042
     Dates: start: 20051111, end: 20051111
  2. ABCIXIMAB (ABCIXIMAB) [Suspect]
     Indication: ACUTE MYOCARDIAL INFARCTION
     Dates: start: 20051111
  3. CLOPIDOGREL [Concomitant]
  4. ASPIRIN [Concomitant]
  5. ISOSORBIDE MONONITRATE [Concomitant]
  6. BISOPROLOL [Concomitant]
  7. TRANDOLAPRIL [Concomitant]
  8. CHLORTHALIDONE [Concomitant]
  9. TRIMETAZIDINE [Concomitant]
  10. SIMVASTATIN [Concomitant]

REACTIONS (2)
  - CORONARY ARTERY STENOSIS [None]
  - SINUS BRADYCARDIA [None]
